FAERS Safety Report 23705232 (Version 1)
Quarter: 2024Q2

REPORT INFORMATION
  Report Type: Other
  Country: CN (occurrence: None)
  Receive Date: 20240404
  Receipt Date: 20240404
  Transmission Date: 20240715
  Serious: Yes (Other)
  Sender: FDA-Public Use
  Company Number: CN-ROCHE-3535752

PATIENT

DRUGS (4)
  1. TRASTUZUMAB [Suspect]
     Active Substance: TRASTUZUMAB
     Indication: HER2 positive breast cancer
     Dosage: MAINTAINED AT 6MG/KG ON THE FIRST DAY
     Route: 042
  2. PYROTINIB [Suspect]
     Active Substance: PYROTINIB
     Indication: HER2 positive breast cancer
     Route: 048
  3. DOCETAXEL [Suspect]
     Active Substance: DOCETAXEL\DOCETAXEL ANHYDROUS
     Indication: HER2 positive breast cancer
     Dosage: ON THE FIRST DAY
     Route: 042
  4. CARBOPLATIN [Suspect]
     Active Substance: CARBOPLATIN
     Indication: HER2 positive breast cancer
     Dosage: ADMINISTERED AT THE DOSE OF THE AREA UNDER THE CURVE (AUC) 6 MG/(ML.MIN) ON THE FIRST DAY
     Route: 042

REACTIONS (16)
  - Diarrhoea [Unknown]
  - Anaemia [Unknown]
  - Nausea [Unknown]
  - Vomiting [Unknown]
  - Fatigue [Unknown]
  - Hypomagnesaemia [Unknown]
  - Leukopenia [Unknown]
  - Neutropenia [Unknown]
  - Thrombocytopenia [Unknown]
  - Transaminases increased [Unknown]
  - Pruritus [Unknown]
  - Decreased appetite [Unknown]
  - Blood creatinine increased [Unknown]
  - Hypokalaemia [Unknown]
  - Hyponatraemia [Unknown]
  - Mouth ulceration [Unknown]
